FAERS Safety Report 24742836 (Version 1)
Quarter: 2024Q4

REPORT INFORMATION
  Report Type: Spontaneous
  Country: PE (occurrence: PE)
  Receive Date: 20241217
  Receipt Date: 20241217
  Transmission Date: 20250114
  Serious: Yes (Other)
  Sender: PFIZER
  Company Number: PE-PFIZER INC-PV202400162726

PATIENT
  Age: 61 Year
  Sex: Female

DRUGS (1)
  1. NURTEC ODT [Suspect]
     Active Substance: RIMEGEPANT SULFATE
     Indication: Migraine
     Dosage: 75 MG, EVERY OTHER DAY
     Route: 048

REACTIONS (2)
  - Diabetes mellitus [Unknown]
  - Transaminases increased [Unknown]
